FAERS Safety Report 21124821 (Version 1)
Quarter: 2022Q3

REPORT INFORMATION
  Report Type: Spontaneous
  Country: US (occurrence: US)
  Receive Date: 20220725
  Receipt Date: 20220725
  Transmission Date: 20221027
  Serious: Yes (Other)
  Sender: FDA-Public Use
  Company Number: US-MYLANLABS-2022M1079482

PATIENT
  Sex: Female
  Weight: 40.82 kg

DRUGS (1)
  1. FENTANYL TRANSDERMAL SYSTEM [Suspect]
     Active Substance: FENTANYL
     Indication: Crohn^s disease
     Dosage: 0.025 MILLIGRAM, QH (0.025 MG / HR, ONE PATCH FOR 3 DAYS)
     Route: 062
     Dates: end: 20220708

REACTIONS (3)
  - Hallucination [Recovered/Resolved]
  - Product quality issue [Unknown]
  - Wrong technique in product usage process [Unknown]
